FAERS Safety Report 21498873 (Version 1)
Quarter: 2022Q4

REPORT INFORMATION
  Report Type: Spontaneous
  Country: US (occurrence: US)
  Receive Date: 20221024
  Receipt Date: 20221024
  Transmission Date: 20230113
  Serious: Yes (Hospitalization)
  Sender: FDA-Public Use
  Company Number: US-MLMSERVICE-20221010-3847370-1

PATIENT
  Age: 64 Year
  Sex: Female

DRUGS (3)
  1. NIFEDIPINE [Suspect]
     Active Substance: NIFEDIPINE
     Indication: Suicide attempt
     Route: 065
  2. CARVEDILOL [Suspect]
     Active Substance: CARVEDILOL
     Indication: Suicide attempt
     Route: 065
  3. LOSARTAN [Suspect]
     Active Substance: LOSARTAN
     Indication: Suicide attempt
     Route: 065

REACTIONS (3)
  - Shock [Not Recovered/Not Resolved]
  - Suicide attempt [Unknown]
  - Intentional overdose [Unknown]
